FAERS Safety Report 4756963-8 (Version None)
Quarter: 2005Q3

REPORT INFORMATION
  Report Type: 
  Country: None (occurrence: None)
  Receive Date: 20050830
  Receipt Date: 20050414
  Transmission Date: 20060218
  Serious: Yes (Death)
  Sender: FDA-Public Use
  Company Number: US-MERCK-0504USA02986

PATIENT
  Age: 63 Year
  Sex: Female
  Weight: 76 kg

DRUGS (15)
  1. VIOXX [Suspect]
     Indication: SPINAL OSTEOARTHRITIS
     Route: 048
     Dates: start: 20010101, end: 20040401
  2. VIOXX [Suspect]
     Indication: CERVICOBRACHIAL SYNDROME
     Route: 048
     Dates: start: 20010101, end: 20040401
  3. NEURONTIN [Concomitant]
     Indication: NEURALGIA
     Route: 048
  4. ULTRAM [Concomitant]
     Route: 048
  5. ASPIRIN [Concomitant]
     Indication: PROPHYLAXIS
     Route: 048
     Dates: start: 20040201, end: 20040430
  6. PEPCID [Concomitant]
     Route: 048
     Dates: start: 20040101
  7. ESTRADIOL [Concomitant]
     Route: 065
     Dates: end: 20040430
  8. LIPITOR [Concomitant]
     Indication: BLOOD CHOLESTEROL INCREASED
     Route: 065
     Dates: start: 20030514, end: 20040401
  9. OXYCONTIN [Concomitant]
     Indication: PAIN MANAGEMENT
     Route: 065
     Dates: start: 20020724
  10. MEPERIDINE HYDROCHLORIDE [Concomitant]
     Indication: PAIN
     Route: 065
     Dates: start: 19910101
  11. VICODIN [Concomitant]
     Route: 048
  12. AMITRIPTYLIN [Concomitant]
     Route: 048
  13. MELATONINA [Concomitant]
     Route: 065
     Dates: end: 20040401
  14. GEMFIBROZIL [Concomitant]
     Route: 065
     Dates: end: 20030401
  15. TYLENOL [Concomitant]
     Route: 065
     Dates: end: 20040430

REACTIONS (5)
  - CARDIAC FAILURE [None]
  - CHEST PAIN [None]
  - GASTROOESOPHAGEAL REFLUX DISEASE [None]
  - MYOCARDIAL INFARCTION [None]
  - PAIN IN EXTREMITY [None]
